FAERS Safety Report 20748261 (Version 2)
Quarter: 2022Q2

REPORT INFORMATION
  Report Type: Report from Study
  Country: US (occurrence: US)
  Receive Date: 20220426
  Receipt Date: 20220513
  Transmission Date: 20220720
  Serious: No
  Sender: FDA-Public Use
  Company Number: US-AMGEN-USASL2022049439

PATIENT
  Age: 74 Year
  Sex: Female

DRUGS (1)
  1. REPATHA [Suspect]
     Active Substance: EVOLOCUMAB
     Indication: Low density lipoprotein increased
     Dosage: 140 MILLIGRAM, Q2WK
     Route: 065
     Dates: start: 20220304

REACTIONS (2)
  - Injection site pain [Unknown]
  - Vasospasm [Not Recovered/Not Resolved]

NARRATIVE: CASE EVENT DATE: 20220301
